FAERS Safety Report 5408751-7 (Version None)
Quarter: 2007Q3

REPORT INFORMATION
  Report Type: 
  Country: None (occurrence: None)
  Receive Date: 20070808
  Receipt Date: 20070801
  Transmission Date: 20080115
  Serious: Yes (Hospitalization)
  Sender: FDA-Public Use
  Company Number: B0482214A

PATIENT
  Age: 87 Year
  Sex: Female

DRUGS (6)
  1. ARIXTRA [Suspect]
     Indication: THROMBOSIS
     Dosage: 7.5MG PER DAY
     Route: 058
     Dates: start: 20070520, end: 20070527
  2. NEURONTIN [Concomitant]
     Dosage: 900MG PER DAY
     Route: 048
  3. RABEPRAZOLE SODIUM [Concomitant]
     Dosage: 10MG PER DAY
     Route: 048
  4. CORTANCYL [Concomitant]
     Dosage: 5MG PER DAY
     Route: 048
  5. AMLODIPINE [Concomitant]
     Dosage: 10MG PER DAY
     Route: 048
  6. DI ANTALVIC [Concomitant]
     Indication: PAIN

REACTIONS (4)
  - FALL [None]
  - MUSCLE HAEMORRHAGE [None]
  - NECROSIS [None]
  - THROMBOCYTHAEMIA [None]
